FAERS Safety Report 8768788 (Version 2)
Quarter: 2012Q4

REPORT INFORMATION
  Report Type: 
  Country: FR (occurrence: FR)
  Receive Date: 20120906
  Receipt Date: 20121221
  Transmission Date: 20130627
  Serious: Yes (Hospitalization)
  Sender: FDA-Public Use
  Company Number: FR-ROCHE-1114855

PATIENT
  Age: 53 Year
  Sex: Female

DRUGS (3)
  1. BONVIVA [Suspect]
     Indication: PRODUCT USED FOR UNKNOWN INDICATION
     Route: 048
  2. BREXIN (FRANCE) [Concomitant]
  3. DOLIPRANE [Concomitant]

REACTIONS (3)
  - Urticaria [Recovered/Resolved]
  - Malaise [Recovered/Resolved]
  - Eyelid oedema [Recovered/Resolved]
